FAERS Safety Report 17770608 (Version 2)
Quarter: 2020Q2

REPORT INFORMATION
  Report Type: Spontaneous
  Country: US (occurrence: US)
  Receive Date: 20200512
  Receipt Date: 20200601
  Transmission Date: 20200714
  Serious: No
  Sender: FDA-Public Use
  Company Number: US-GLAXOSMITHKLINE-US2020AMR079179

PATIENT
  Sex: Female
  Weight: 64.4 kg

DRUGS (2)
  1. NIRAPARIB [Suspect]
     Active Substance: NIRAPARIB
     Indication: OVARIAN CANCER STAGE III
     Dosage: UNK UNK, QD
  2. NIRAPARIB [Suspect]
     Active Substance: NIRAPARIB
     Dosage: UNK
     Route: 048
     Dates: start: 20200124, end: 20200403

REACTIONS (3)
  - Toxicity to various agents [Unknown]
  - Rash [Recovered/Resolved]
  - Rash erythematous [Recovered/Resolved]
